FAERS Safety Report 5509365-0 (Version None)
Quarter: 2007Q4

REPORT INFORMATION
  Report Type: 
  Country: None (occurrence: None)
  Receive Date: 20071107
  Receipt Date: 20071026
  Transmission Date: 20080405
  Serious: Yes (Hospitalization, Other)
  Sender: FDA-Public Use
  Company Number: US-PFIZER INC-2007090620

PATIENT
  Sex: Male
  Weight: 107.27 kg

DRUGS (10)
  1. ZYVOX [Suspect]
     Indication: LOCALISED INFECTION
     Route: 042
     Dates: start: 20070907, end: 20070901
  2. ZYVOX [Interacting]
     Indication: OSTEOMYELITIS
     Route: 042
     Dates: start: 20070901, end: 20071001
  3. ZYVOX [Interacting]
     Indication: LOCALISED INFECTION
     Route: 048
     Dates: start: 20070914, end: 20070901
  4. ZYVOX [Interacting]
     Indication: OSTEOMYELITIS
     Route: 048
     Dates: start: 20071001
  5. ALL OTHER THERAPEUTIC PRODUCTS [Interacting]
     Dates: start: 20070901, end: 20070901
  6. CIPROFLOXACIN [Concomitant]
  7. COZAAR [Concomitant]
  8. VYTORIN [Concomitant]
  9. INSULIN [Concomitant]
  10. HUMULIN N [Concomitant]

REACTIONS (13)
  - ABDOMINAL PAIN UPPER [None]
  - ANOREXIA [None]
  - ASTHENIA [None]
  - DEHYDRATION [None]
  - DIARRHOEA [None]
  - DRUG INTERACTION [None]
  - DRY MOUTH [None]
  - FLUID INTAKE REDUCED [None]
  - NAUSEA [None]
  - PHARYNGOLARYNGEAL PAIN [None]
  - PYREXIA [None]
  - STAPHYLOCOCCAL INFECTION [None]
  - VOMITING [None]
